FAERS Safety Report 16377770 (Version 1)
Quarter: 2019Q2

REPORT INFORMATION
  Report Type: Spontaneous
  Country: US (occurrence: US)
  Receive Date: 20190405
  Receipt Date: 20190405
  Transmission Date: 20190711
  Serious: Yes (Hospitalization)
  Sender: FDA-Public Use
  Company Number: None

PATIENT
  Age: 69 Year
  Sex: Male

DRUGS (14)
  1. PROTONIX [Concomitant]
     Active Substance: PANTOPRAZOLE SODIUM
  2. CYANOCOBALAMIN POWDER [Concomitant]
  3. IRBESARTAN HYDROCHLOROTHIA [Concomitant]
  4. ATORVASTATIN [Concomitant]
     Active Substance: ATORVASTATIN
  5. BACTRIM DS [Concomitant]
     Active Substance: SULFAMETHOXAZOLE\TRIMETHOPRIM
  6. ASPIRIN. [Concomitant]
     Active Substance: ASPIRIN
  7. ACYCLOVIR. [Concomitant]
     Active Substance: ACYCLOVIR
  8. TEMOZOLOMIDE 140 MG CAP ASCE [Suspect]
     Active Substance: TEMOZOLOMIDE
     Indication: BRAIN NEOPLASM MALIGNANT
     Dosage: ?          OTHER FREQUENCY:DAYS 1-5 OF A 28 D;??
     Route: 048
     Dates: start: 20180611
  9. XALATAN OPHTHALMIC SOLUTION [Concomitant]
  10. PRIMIDONE. [Concomitant]
     Active Substance: PRIMIDONE
  11. INDERAL LA [Concomitant]
     Active Substance: PROPRANOLOL HYDROCHLORIDE
  12. KLONOPIN [Concomitant]
     Active Substance: CLONAZEPAM
  13. GABAPENTIN. [Concomitant]
     Active Substance: GABAPENTIN
  14. TOPAMAX [Concomitant]
     Active Substance: TOPIRAMATE

REACTIONS (2)
  - Nausea [None]
  - Fatigue [None]

NARRATIVE: CASE EVENT DATE: 20190328
